FAERS Safety Report 8143116-9 (Version None)
Quarter: 2012Q1

REPORT INFORMATION
  Report Type: 
  Country: None (occurrence: None)
  Receive Date: 20120217
  Receipt Date: 20120213
  Transmission Date: 20120608
  Serious: No
  Sender: FDA-Public Use
  Company Number: US-PFIZER INC-2012007600

PATIENT
  Sex: Female
  Weight: 90.703 kg

DRUGS (3)
  1. LIDOCAINE [Concomitant]
     Indication: PAIN
     Dosage: UNK
  2. FLECTOR [Suspect]
     Indication: BACK PAIN
     Dosage: 1 DF, 2X/DAY
     Route: 062
     Dates: start: 20110301, end: 20110901
  3. FLECTOR [Suspect]
     Dosage: UNK, EVERY TWELVE HOURS
     Route: 061
     Dates: start: 20110101, end: 20110901

REACTIONS (9)
  - DYSPEPSIA [None]
  - PARAESTHESIA [None]
  - EYE IRRITATION [None]
  - LUNG DISORDER [None]
  - THROAT IRRITATION [None]
  - ORAL PRURITUS [None]
  - DYSGEUSIA [None]
  - EAR DISCOMFORT [None]
  - DIZZINESS [None]
